FAERS Safety Report 7919998-X (Version None)
Quarter: 2011Q4

REPORT INFORMATION
  Report Type: 
  Country: None (occurrence: None)
  Receive Date: 20111117
  Receipt Date: 20111026
  Transmission Date: 20120403
  Serious: Yes (Hospitalization)
  Sender: FDA-Public Use
  Company Number: GB-SANOFI-AVENTIS-2011SA073105

PATIENT
  Sex: Female

DRUGS (37)
  1. POTASSIUM CHLORIDE [Suspect]
     Route: 048
     Dates: start: 20090701
  2. POTASSIUM CHLORIDE [Suspect]
     Route: 048
     Dates: start: 20090901
  3. DIGOXIN [Suspect]
     Route: 048
  4. LORAZEPAM [Suspect]
     Indication: SLEEP DISORDER
     Dosage: 0.5-1.5 MG. PRN
     Route: 048
  5. CARISOPRODOL [Suspect]
     Dosage: PRN
     Route: 065
  6. CALCIUM/VITAMIN D [Concomitant]
  7. EZETIMIBE [Concomitant]
  8. METOPROLOL SUCCINATE [Concomitant]
  9. ROSUVASTATIN [Concomitant]
  10. DIGOXIN [Suspect]
     Route: 048
  11. PREDNISONE TAB [Suspect]
     Route: 048
  12. ASPIRIN [Concomitant]
     Dates: start: 20090501
  13. HYDROCODONE BITARTRATE + ACETAMINOPHEN [Concomitant]
     Dosage: 5/500 MG
  14. FLUTICASONE PROPIONATE/SALMETEROL [Suspect]
     Dosage: INHALER, 500/50 MCG, 1 PUFF BID
     Route: 054
     Dates: start: 20090513
  15. FENTANYL [Concomitant]
     Dosage: PATCH
     Dates: start: 20090101
  16. MULTI-VITAMINS [Concomitant]
  17. ATROPINE/DIPHENOXYLATE [Suspect]
     Dosage: PRN
     Route: 048
  18. DICYCLOMINE HCL [Suspect]
     Route: 048
     Dates: start: 20090701, end: 20090801
  19. SUCRALFATE [Suspect]
     Route: 048
  20. LEVALBUTEROL HYDROCHLORIDE [Concomitant]
     Dates: start: 20090101
  21. VITAMIN D [Concomitant]
     Dates: start: 20090101
  22. AMLODIPINE [Concomitant]
  23. ACETAMINOPHEN [Concomitant]
     Dates: start: 20090101
  24. MEMANTINE [Concomitant]
     Dates: start: 20090101
  25. PSYLLIUM [Concomitant]
     Dates: start: 20090101
  26. FUROSEMIDE [Suspect]
     Route: 065
  27. DICYCLOMINE HCL [Suspect]
     Route: 048
     Dates: start: 20090501
  28. LORAZEPAM [Suspect]
     Route: 048
     Dates: start: 20090501
  29. METOLAZONE [Concomitant]
     Dates: start: 20090101
  30. ESOMEPRAZOLE [Concomitant]
     Dates: start: 20090501
  31. SACCHAROMYCES BOULARDII [Concomitant]
     Dates: start: 20090101
  32. LEVOTHYROXINE SODIUM [Concomitant]
     Dates: start: 20090101
  33. METOPROLOL TARTRATE [Concomitant]
     Dates: start: 20090101
  34. PHENOXYBENZAMINE [Concomitant]
     Dates: start: 20090101
  35. OMEPRAZOLE [Concomitant]
     Dates: start: 20090501
  36. METAXALONE [Suspect]
     Dosage: PRN
     Route: 048
  37. TERIPARATIDE [Concomitant]
     Dosage: 750MCG/3ML
     Dates: start: 20090101

REACTIONS (7)
  - DEHYDRATION [None]
  - DELIRIUM [None]
  - VISUAL IMPAIRMENT [None]
  - DEPRESSION [None]
  - WEIGHT DECREASED [None]
  - CONSTIPATION [None]
  - URINARY TRACT INFECTION [None]
